FAERS Safety Report 7926970-2 (Version None)
Quarter: 2011Q4

REPORT INFORMATION
  Report Type: 
  Country: None (occurrence: None)
  Receive Date: 20111116
  Receipt Date: 20111103
  Transmission Date: 20120403
  Serious: Yes (Hospitalization)
  Sender: FDA-Public Use
  Company Number: 11-689

PATIENT
  Age: 83 Year
  Sex: Female

DRUGS (7)
  1. ASPIRIN [Suspect]
     Indication: PROPHYLAXIS
     Dosage: 75MG/ONCE; ORAL
     Route: 048
     Dates: start: 20060101, end: 20110112
  2. AMLODIPINE [Concomitant]
  3. ATENOLOL [Concomitant]
  4. BENDROFLAMETHIAZIDE [Concomitant]
  5. LANSOPRAZOLE [Concomitant]
  6. SIMVASTATIN [Concomitant]
  7. IBUPROFEN [Suspect]
     Indication: RHEUMATOID ARTHRITIS
     Dosage: 400MG, ORAL
     Route: 048
     Dates: start: 20010101, end: 20110112

REACTIONS (4)
  - GASTRIC ULCER [None]
  - FAECES DISCOLOURED [None]
  - SYNCOPE [None]
  - BLOOD PRESSURE DECREASED [None]
